FAERS Safety Report 24394442 (Version 1)
Quarter: 2024Q4

REPORT INFORMATION
  Report Type: Spontaneous
  Country: JP (occurrence: JP)
  Receive Date: 20241004
  Receipt Date: 20241004
  Transmission Date: 20250115
  Serious: Yes (Death, Other)
  Sender: SANDOZ
  Company Number: JP-002147023-NVSJ2024JP011511

PATIENT
  Sex: Male

DRUGS (1)
  1. EXELON [Suspect]
     Active Substance: RIVASTIGMINE TARTRATE
     Indication: Dementia Alzheimer^s type
     Dosage: (ABOUT 10 YEARS)
     Route: 062

REACTIONS (3)
  - Death [Fatal]
  - Dementia Alzheimer^s type [Unknown]
  - Disease progression [Unknown]
